FAERS Safety Report 4295363-4 (Version None)
Quarter: 2004Q1

REPORT INFORMATION
  Report Type: 
  Country: None (occurrence: None)
  Receive Date: 20040216
  Receipt Date: 20030627
  Transmission Date: 20041129
  Serious: No
  Sender: FDA-Public Use
  Company Number: US-GLAXOSMITHKLINE-A0414331A

PATIENT
  Sex: Female

DRUGS (4)
  1. LAMICTAL [Suspect]
     Route: 048
  2. VALPROIC ACID [Concomitant]
  3. PROGESTERONE [Concomitant]
  4. CONCURRENT MEDICATIONS [Concomitant]

REACTIONS (2)
  - BREAST PAIN [None]
  - CHEST WALL PAIN [None]
